FAERS Safety Report 6590245-7 (Version None)
Quarter: 2010Q1

REPORT INFORMATION
  Report Type: 
  Country: None (occurrence: None)
  Receive Date: 20100219
  Receipt Date: 20100208
  Transmission Date: 20100710
  Serious: Yes (Other)
  Sender: FDA-Public Use
  Company Number: PHEH2009US14147

PATIENT
  Sex: Female

DRUGS (11)
  1. RECLAST [Suspect]
     Indication: OSTEOPOROSIS
     Dosage: 5 MG/10 ML ONCE YEARLY
     Dates: start: 20070922, end: 20090930
  2. PREDNISONE [Concomitant]
     Dosage: 3 MG, UNK
  3. CALCIUM [Concomitant]
  4. VITAMIN D [Concomitant]
     Indication: OSTEOPOROSIS
     Dosage: 200 IU/DAY
     Route: 048
  5. THYROID TAB [Concomitant]
     Indication: HYPOTHYROIDISM
     Dosage: 120 MG, UNK
  6. THYROID TAB [Concomitant]
     Dosage: 90 MG/DAY
     Route: 048
  7. HYDROXYCHLOROQUINE SULFATE [Concomitant]
     Dosage: 200 MG, UNK
  8. NEXIUM [Concomitant]
     Indication: GASTROOESOPHAGEAL REFLUX DISEASE
     Dosage: 40 MG/DAY
     Route: 048
  9. CLONAZEPAM [Concomitant]
     Indication: INSOMNIA
     Dosage: 2 MG, QHS
     Route: 048
  10. CLONAZEPAM [Concomitant]
     Indication: ANXIETY
  11. PLAQUENIL [Concomitant]
     Dosage: 200 MG, BID
     Route: 048
     Dates: start: 20070901

REACTIONS (2)
  - ENDODONTIC PROCEDURE [None]
  - TOOTH ABSCESS [None]
